FAERS Safety Report 4665094-7 (Version None)
Quarter: 2005Q2

REPORT INFORMATION
  Report Type: 
  Country: None (occurrence: None)
  Receive Date: 20050517
  Receipt Date: 20050503
  Transmission Date: 20051028
  Serious: Yes (Life-Threatening, Hospitalization)
  Sender: FDA-Public Use
  Company Number: DE_050515849

PATIENT
  Age: 66 Year
  Sex: Female

DRUGS (5)
  1. HUMALOG [Suspect]
     Indication: DIABETES MELLITUS
     Dosage: 14 U
     Dates: start: 20050526, end: 20050526
  2. BISOPROLOL FUMARATE [Concomitant]
  3. ENALAPRIL MALEATE [Concomitant]
  4. NOVASC (AMLODIPINE) [Concomitant]
  5. ATORVASTATIN CALCIUM [Concomitant]

REACTIONS (10)
  - BLOOD LACTIC ACID INCREASED [None]
  - CHILLS [None]
  - DIARRHOEA [None]
  - HYPOVOLAEMIA [None]
  - INFLAMMATION [None]
  - NAUSEA [None]
  - SEPSIS [None]
  - SHOCK [None]
  - VOMITING [None]
  - WHITE BLOOD CELL COUNT DECREASED [None]
